FAERS Safety Report 9746992 (Version 1)
Quarter: 2013Q4

REPORT INFORMATION
  Report Type: Spontaneous
  Country: US (occurrence: US)
  Receive Date: 20131211
  Receipt Date: 20131211
  Transmission Date: 20140711
  Serious: Yes (Other)
  Sender: FDA-Public Use
  Company Number: US-TEVA-448897USA

PATIENT
  Age: 49 Year
  Sex: Female

DRUGS (11)
  1. COPAXONE [Suspect]
     Indication: MULTIPLE SCLEROSIS
     Dates: start: 2010, end: 2013
  2. AMPYRA [Suspect]
     Indication: GAIT DISTURBANCE
     Dosage: 20 MILLIGRAM DAILY;
     Route: 048
     Dates: start: 2008
  3. AMPYRA [Suspect]
     Indication: MULTIPLE SCLEROSIS
     Dosage: 20 MILLIGRAM DAILY;
     Route: 048
     Dates: start: 2010
  4. TYSABRI [Suspect]
     Indication: PRODUCT USED FOR UNKNOWN INDICATION
     Dates: start: 20131021
  5. LYRICA [Concomitant]
  6. MOBIC [Concomitant]
  7. BACLOFEN [Concomitant]
  8. NEURONTIN [Concomitant]
  9. ANTIHYPERTENSIVES [Concomitant]
  10. DRUG USED IN DIABETES [Concomitant]
  11. OTHER CHOLESTEROL AND TRIGLYCERIDE REDUCERS [Concomitant]

REACTIONS (13)
  - Central nervous system lesion [Unknown]
  - Sinusitis [Recovered/Resolved]
  - Nasopharyngitis [Unknown]
  - Nasal congestion [Unknown]
  - Cough [Unknown]
  - Increased upper airway secretion [Unknown]
  - Gait disturbance [Recovering/Resolving]
  - Gait disturbance [Unknown]
  - Balance disorder [Unknown]
  - Sluggishness [Unknown]
  - Rhinorrhoea [Unknown]
  - Emotional distress [Unknown]
  - Vaginal discharge [Unknown]
